FAERS Safety Report 8835266 (Version 3)
Quarter: 2012Q4

REPORT INFORMATION
  Report Type: 
  Country: ES (occurrence: ES)
  Receive Date: 20121011
  Receipt Date: 20121116
  Transmission Date: 20130627
  Serious: Yes (Death)
  Sender: FDA-Public Use
  Company Number: ES-SANOFI-AVENTIS-2012SA072120

PATIENT
  Age: 72 Year
  Sex: Female

DRUGS (6)
  1. SEGURIL [Suspect]
     Indication: CARDIAC FAILURE
     Route: 048
     Dates: start: 20120426, end: 20120430
  2. ALDACTONE [Interacting]
     Indication: CARDIAC FAILURE
     Dosage: strength: 25 mg
     Route: 048
     Dates: start: 20120426, end: 20120430
  3. ERTAPENEM [Interacting]
     Indication: RESPIRATORY TRACT INFECTION
     Route: 048
     Dates: start: 20120428
  4. HYDRALAZINE [Concomitant]
     Indication: HYPERTENSION
     Route: 048
     Dates: start: 2009, end: 20120430
  5. HIBOR [Concomitant]
     Indication: CARDIOVASCULAR EVENT PROPHYLAXIS
     Route: 058
     Dates: start: 20120426
  6. TRANXILIUM [Concomitant]
     Indication: INSOMNIA
     Route: 048
     Dates: start: 2009, end: 20120430

REACTIONS (4)
  - Renal failure acute [Fatal]
  - Hyperkalaemia [Recovered/Resolved]
  - Hyponatraemia [Recovered/Resolved]
  - Drug interaction [Unknown]
